FAERS Safety Report 9458467 (Version 2)
Quarter: 2013Q3

REPORT INFORMATION
  Report Type: Report from Study
  Country: US (occurrence: US)
  Receive Date: 20130814
  Receipt Date: 20130823
  Transmission Date: 20140515
  Serious: Yes (Hospitalization)
  Sender: FDA-Public Use
  Company Number: US-ACTELION-A-NJ2012-62325

PATIENT
  Age: 73 Year
  Sex: Female

DRUGS (17)
  1. TRACLEER [Suspect]
     Indication: PULMONARY ARTERIAL HYPERTENSION
     Dosage: 125 MG, BID
     Route: 048
     Dates: start: 2008
  2. TRACLEER [Suspect]
     Dosage: 62.5 MG, BID
     Route: 048
     Dates: start: 2008, end: 2008
  3. REVATIO [Concomitant]
     Dosage: 20 MG, TID
     Dates: start: 2007
  4. VITAMIN D3 [Concomitant]
     Dosage: 1000 U, QD
  5. MIACALCIN [Concomitant]
     Dosage: 200 U, QD
  6. AMBIEN [Concomitant]
     Dosage: 5 MG, QD
  7. LISINOPRIL [Concomitant]
     Dosage: 20 MG, BID
  8. CYMBALTA [Concomitant]
     Dosage: 60 MG, QD
  9. CRESTOR [Concomitant]
     Dosage: 40 MG, QD
  10. WELLBUTRIN [Concomitant]
     Dosage: 150 MG, QD
  11. LASIX [Concomitant]
     Dosage: 20 MG, QD AND 40MG EVERY OTHER DAY
  12. SPIRIVA [Concomitant]
     Dosage: 18 MCG, QD
  13. KLONOPIN [Concomitant]
     Dosage: 0.5 MG, BID
  14. NORVASC [Concomitant]
     Dosage: 10 MG, BID
  15. PLAVIX [Concomitant]
     Dosage: 75 MG, BID
  16. TOPROL [Concomitant]
     Dosage: 50 MG, BID
  17. HYDRALAZINE [Concomitant]
     Dosage: 10 MG, TID

REACTIONS (8)
  - Cardiac disorder [Recovered/Resolved]
  - Catheterisation cardiac [Recovered/Resolved]
  - Cardiac procedure complication [Recovered/Resolved]
  - Knee arthroplasty [Recovered/Resolved]
  - Arthralgia [Recovered/Resolved]
  - Coronary arterial stent insertion [Recovering/Resolving]
  - Femur fracture [Recovered/Resolved]
  - Arthropathy [Recovered/Resolved]
